FAERS Safety Report 12331969 (Version 1)
Quarter: 2016Q2

REPORT INFORMATION
  Report Type: Spontaneous
  Country: US (occurrence: None)
  Receive Date: 20160503
  Receipt Date: 20160503
  Transmission Date: 20160815
  Serious: Yes (Hospitalization)
  Sender: FDA-Public Use
  Company Number: None

PATIENT
  Sex: Male
  Weight: 62.6 kg

DRUGS (1)
  1. TARCEVA [Suspect]
     Active Substance: ERLOTINIB HYDROCHLORIDE
     Indication: BENIGN PANCREATIC NEOPLASM
     Route: 048
     Dates: start: 20160328

REACTIONS (3)
  - Respiratory failure [None]
  - Renal failure [None]
  - Haemoglobin decreased [None]
